FAERS Safety Report 8471245-9 (Version None)
Quarter: 2012Q2

REPORT INFORMATION
  Report Type: 
  Country: None (occurrence: None)
  Receive Date: 20120627
  Receipt Date: 20120622
  Transmission Date: 20120825
  Serious: No
  Sender: FDA-Public Use
  Company Number: US-BAYER-2012-063049

PATIENT
  Sex: Male

DRUGS (1)
  1. ALEVE (CAPLET) [Suspect]
     Dosage: 1 U, QD
     Route: 048
     Dates: start: 20120501

REACTIONS (2)
  - PRURITUS GENERALISED [None]
  - PRURITUS [None]
